FAERS Safety Report 4518657-3 (Version None)
Quarter: 2004Q4

REPORT INFORMATION
  Report Type: 
  Country: None (occurrence: None)
  Receive Date: 20041029
  Receipt Date: 20040914
  Transmission Date: 20050328
  Serious: No
  Sender: FDA-Public Use
  Company Number: 200416966US

PATIENT
  Age: 45 Year
  Sex: Female

DRUGS (3)
  1. KETEK [Suspect]
     Dosage: 2 X 400 MG QD PO
     Route: 048
     Dates: start: 20040910
  2. PSEUDOEPHEDRINE HYDROCHLORIDE [Concomitant]
  3. GUAIFENESIN (PAN-MIST LA) [Concomitant]

REACTIONS (1)
  - TONGUE BLACK HAIRY [None]
